FAERS Safety Report 7316368-2 (Version None)
Quarter: 2011Q1

REPORT INFORMATION
  Report Type: 
  Country: None (occurrence: None)
  Receive Date: 20110225
  Receipt Date: 20110211
  Transmission Date: 20110831
  Serious: Yes (Hospitalization)
  Sender: FDA-Public Use
  Company Number: ZA-CELGENEUS-143-50794-11021476

PATIENT
  Sex: Male
  Weight: 90 kg

DRUGS (2)
  1. VIDAZA [Suspect]
     Route: 058
     Dates: start: 20110207, end: 20110210
  2. CYCLOKAPRON [Concomitant]
     Indication: THROMBOCYTOPENIA
     Route: 065
     Dates: start: 20110207

REACTIONS (6)
  - FEBRILE NEUTROPENIA [None]
  - HYPOTENSION [None]
  - FLUSHING [None]
  - PYREXIA [None]
  - CHILLS [None]
  - TACHYCARDIA [None]
